FAERS Safety Report 24171096 (Version 1)
Quarter: 2024Q3

REPORT INFORMATION
  Report Type: Spontaneous
  Country: GB (occurrence: GB)
  Receive Date: 20240805
  Receipt Date: 20240805
  Transmission Date: 20241017
  Serious: Yes (Other)
  Sender: DEXCEL
  Company Number: None

PATIENT
  Age: 44 Year
  Sex: Female

DRUGS (4)
  1. AMITRIPTYLINE HYDROCHLORIDE [Suspect]
     Active Substance: AMITRIPTYLINE HYDROCHLORIDE
     Dosage: AT NIGHT
  2. FexofenadineFEXOFENADINE (Specific Substance SUB7270) [Concomitant]
     Dosage: ONCE A DAY
     Dates: end: 20240717
  3. VENLAFAXINE [Suspect]
     Active Substance: VENLAFAXINE HYDROCHLORIDE
     Dosage: AS DIRECTED
  4. PregabalinPREGABALIN (Specific Substance SUB8130) [Concomitant]

REACTIONS (4)
  - Dyspnoea [Unknown]
  - Mass [Unknown]
  - Extrapyramidal disorder [Recovered/Resolved]
  - Muscle spasms [Unknown]
